FAERS Safety Report 6978215-8 (Version None)
Quarter: 2010Q3

REPORT INFORMATION
  Report Type: 
  Country: None (occurrence: None)
  Receive Date: 20100913
  Receipt Date: 20100901
  Transmission Date: 20110219
  Serious: Yes (Other)
  Sender: FDA-Public Use
  Company Number: BR-ELI_LILLY_AND_COMPANY-BR201007001792

PATIENT
  Sex: Male
  Weight: 54 kg

DRUGS (4)
  1. FORTEO [Suspect]
     Indication: OSTEOPOROSIS
     Dosage: UNK, DAILY (1/D)
     Route: 065
     Dates: start: 20091001
  2. FORTEO [Suspect]
     Dosage: UNK, DAILY (1/D)
     Route: 065
     Dates: end: 20100101
  3. FORTEO [Suspect]
     Dosage: UNK, DAILY (1/D)
     Route: 065
     Dates: start: 20100827
  4. CALCIUM [Concomitant]
     Dosage: 600 MG, OTHER
     Route: 048

REACTIONS (4)
  - DYSPHONIA [None]
  - HYPERSENSITIVITY [None]
  - VOCAL CORD DISORDER [None]
  - VOCAL CORD POLYP [None]
